FAERS Safety Report 12532353 (Version 1)
Quarter: 2016Q3

REPORT INFORMATION
  Report Type: Report from Study
  Country: CA (occurrence: CA)
  Receive Date: 20160706
  Receipt Date: 20160706
  Transmission Date: 20161109
  Serious: Yes (Other)
  Sender: FDA-Public Use
  Company Number: CA-ABBVIE-15P-028-1475622-00

PATIENT
  Sex: Female

DRUGS (1)
  1. HUMIRA [Suspect]
     Active Substance: ADALIMUMAB
     Indication: RHEUMATOID ARTHRITIS
     Route: 058
     Dates: start: 20081210, end: 20150915

REACTIONS (5)
  - Muscle rupture [Not Recovered/Not Resolved]
  - Asthenia [Unknown]
  - Breast mass [Not Recovered/Not Resolved]
  - Neoplasm malignant [Unknown]
  - Shoulder deformity [Not Recovered/Not Resolved]
